FAERS Safety Report 20623831 (Version 1)
Quarter: 2022Q1

REPORT INFORMATION
  Report Type: Spontaneous
  Country: US (occurrence: US)
  Receive Date: 20220322
  Receipt Date: 20220322
  Transmission Date: 20220424
  Serious: Yes (Other)
  Sender: FDA-Public Use
  Company Number: US-LUPIN PHARMACEUTICALS INC.-2022-03934

PATIENT
  Age: 31 Year
  Sex: Male

DRUGS (16)
  1. VORICONAZOLE [Suspect]
     Active Substance: VORICONAZOLE
     Indication: Acanthamoeba keratitis
     Dosage: 1 PERCENT (EVERY HOUR)
     Route: 061
  2. VORICONAZOLE [Suspect]
     Active Substance: VORICONAZOLE
     Dosage: 400 MG, QD
     Route: 048
  3. VORICONAZOLE [Suspect]
     Active Substance: VORICONAZOLE
     Dosage: UNK, 50 MICROGRAM/0.1ML, RECEIVED TWO INJECTIONS, INTRASTOMAL
     Route: 065
  4. POVIDONE-IODINE [Suspect]
     Active Substance: POVIDONE-IODINE
     Indication: Acanthamoeba keratitis
     Dosage: UNK (EVERY 2 MINUTES FOR A TOTAL OF 10 MINUTES)
     Route: 065
  5. OFLOXACIN [Suspect]
     Active Substance: OFLOXACIN
     Indication: Acanthamoeba keratitis
     Dosage: UNK, EVERY 1 HOUR
     Route: 061
  6. OFLOXACIN [Suspect]
     Active Substance: OFLOXACIN
     Dosage: UNK, EVERY 2 HOURS
     Route: 061
  7. BACITRACIN ZINC\NEOMYCIN SULFATE\POLYMYXIN B SULFATE [Suspect]
     Active Substance: BACITRACIN ZINC\NEOMYCIN SULFATE\POLYMYXIN B SULFATE
     Indication: Acanthamoeba keratitis
     Dosage: UNK, 3.5MG/10,000 UNITS FOUR TIMES A DAY
     Route: 061
  8. BACITRACIN ZINC\NEOMYCIN SULFATE\POLYMYXIN B SULFATE [Suspect]
     Active Substance: BACITRACIN ZINC\NEOMYCIN SULFATE\POLYMYXIN B SULFATE
     Dosage: UNK, AT BEDTIME; 3.5MG/10,000 UNITS FOUR TIMES A DAY
     Route: 061
  9. CHLORHEXIDINE [Suspect]
     Active Substance: CHLORHEXIDINE
     Indication: Acanthamoeba keratitis
     Dosage: UNK, EVERY 1 HOUR
     Route: 061
  10. CHLORHEXIDINE [Suspect]
     Active Substance: CHLORHEXIDINE
     Dosage: UNK, EVERY 2 HOUR
     Route: 061
  11. POLIHEXANIDE HYDROCHLORIDE [Suspect]
     Active Substance: POLIHEXANIDE HYDROCHLORIDE
     Indication: Acanthamoeba keratitis
     Dosage: 0.02 PERCENT (EVERY HOUR)
     Route: 061
  12. POLIHEXANIDE HYDROCHLORIDE [Suspect]
     Active Substance: POLIHEXANIDE HYDROCHLORIDE
     Dosage: 0.04 PERCENT (EVERY TWO HOURS)
     Route: 061
  13. NEOMYCIN AND POLYMYXIN B SULFATES AND DEXAMETHASONE [Suspect]
     Active Substance: DEXAMETHASONE\NEOMYCIN SULFATE\POLYMYXIN B SULFATE
     Indication: Acanthamoeba keratitis
     Dosage: UNK, 3.5 MG/10,000 UNITS/0.1%
     Route: 061
  14. PROPAMIDINE ISETHIONATE [Suspect]
     Active Substance: PROPAMIDINE ISETHIONATE
     Indication: Acanthamoeba keratitis
     Dosage: UNK
     Route: 065
  15. ACETAMINOPHEN [Suspect]
     Active Substance: ACETAMINOPHEN
     Indication: Acanthamoeba keratitis
     Dosage: UNK
     Route: 048
  16. MILTEFOSINE [Suspect]
     Active Substance: MILTEFOSINE
     Indication: Acanthamoeba keratitis
     Dosage: 50 MG, TID
     Route: 048

REACTIONS (4)
  - Drug ineffective for unapproved indication [Unknown]
  - Off label use [Unknown]
  - Abdominal discomfort [Unknown]
  - Drug intolerance [Unknown]
